FAERS Safety Report 9816555 (Version 1)
Quarter: 2014Q1

REPORT INFORMATION
  Report Type: Spontaneous
  Country: FR (occurrence: FR)
  Receive Date: 20140114
  Receipt Date: 20140114
  Transmission Date: 20141002
  Serious: Yes (Hospitalization, Other)
  Sender: FDA-Public Use
  Company Number: FR-ASTRAZENECA-2014SE01505

PATIENT
  Age: 70 Year
  Sex: Male

DRUGS (2)
  1. BRILIQUE [Suspect]
     Route: 048
     Dates: start: 20130128, end: 20130415
  2. DUOPLAVIN [Suspect]
     Dosage: DAILY
     Route: 048
     Dates: start: 201210, end: 20130128

REACTIONS (9)
  - Interstitial lung disease [Recovered/Resolved]
  - Toxic skin eruption [Unknown]
  - Antineutrophil cytoplasmic antibody positive [Unknown]
  - Pneumocystis test positive [Unknown]
  - Eczema [Unknown]
  - Rash erythematous [Recovered/Resolved]
  - Rash pruritic [Recovered/Resolved]
  - Rash generalised [Recovered/Resolved]
  - Therapy cessation [Unknown]
